FAERS Safety Report 6418649-3 (Version None)
Quarter: 2009Q4

REPORT INFORMATION
  Report Type: 
  Country: None (occurrence: None)
  Receive Date: 20091028
  Receipt Date: 20091019
  Transmission Date: 20100525
  Serious: Yes (Hospitalization)
  Sender: FDA-Public Use
  Company Number: IT-ABBOTT-09P-083-0593343-00

PATIENT
  Sex: Male

DRUGS (10)
  1. VECLAM TM TABLETS [Suspect]
     Indication: HELICOBACTER INFECTION
     Route: 048
     Dates: start: 20090817, end: 20090818
  2. VECLAM TM TABLETS [Suspect]
     Indication: HELICOBACTER GASTRITIS
  3. ZIMOX [Suspect]
     Indication: HELICOBACTER INFECTION
     Route: 048
     Dates: start: 20090817, end: 20090818
  4. ZIMOX [Suspect]
     Indication: HELICOBACTER GASTRITIS
  5. MEPRAL [Suspect]
     Indication: HELICOBACTER INFECTION
     Route: 048
     Dates: start: 20090817, end: 20090818
  6. MEPRAL [Suspect]
     Indication: HELICOBACTER GASTRITIS
  7. ACEDIUR [Concomitant]
     Indication: DRUG USE FOR UNKNOWN INDICATION
     Dosage: 1 UNIT
     Dates: start: 20040819, end: 20090818
  8. LASIX [Concomitant]
     Indication: DRUG USE FOR UNKNOWN INDICATION
     Dosage: 20  1 UNIT
     Dates: start: 20040819, end: 20090818
  9. SUGUAN [Concomitant]
     Indication: DRUG USE FOR UNKNOWN INDICATION
     Dosage: 2.5 UNITS
     Dates: start: 20040819, end: 20090818
  10. PRADIF [Concomitant]
     Indication: DRUG USE FOR UNKNOWN INDICATION
     Dosage: 1 UNIT
     Dates: start: 20040819, end: 20090818

REACTIONS (3)
  - DELIRIUM [None]
  - DIARRHOEA [None]
  - ERYTHEMA [None]
